FAERS Safety Report 9817692 (Version 1)
Quarter: 2014Q1

REPORT INFORMATION
  Report Type: Spontaneous
  Country: US (occurrence: None)
  Receive Date: 20140110
  Receipt Date: 20140110
  Transmission Date: 20141002
  Serious: Yes (Other)
  Sender: FDA-Public Use
  Company Number: None

PATIENT
  Age: 55 Year
  Sex: Female

DRUGS (3)
  1. PEGASYS [Suspect]
     Indication: CHRONIC HEPATITIS C
     Dosage: INJECT 180 MCG UNDER THE SKIN ONCE A WEEK
     Dates: start: 20130419
  2. VICTRELIS [Concomitant]
  3. RIBAPAK [Concomitant]

REACTIONS (7)
  - Alopecia [None]
  - Fall [None]
  - Concussion [None]
  - Head injury [None]
  - Irritability [None]
  - Injection site haemorrhage [None]
  - Procedural complication [None]
